FAERS Safety Report 6196021-1 (Version None)
Quarter: 2009Q2

REPORT INFORMATION
  Report Type: 
  Country: None (occurrence: None)
  Receive Date: 20090520
  Receipt Date: 20041207
  Transmission Date: 20091009
  Serious: Yes (Hospitalization)
  Sender: FDA-Public Use
  Company Number: NL-ROCHE-599638

PATIENT
  Sex: Male

DRUGS (1)
  1. CAPECITABINE [Suspect]
     Dosage: DOSAGE REPORTED AS 2800 MG 2DD.
     Route: 065
     Dates: start: 20041011, end: 20041025

REACTIONS (2)
  - DIARRHOEA [None]
  - HICCUPS [None]
